FAERS Safety Report 11167759 (Version 4)
Quarter: 2015Q4

REPORT INFORMATION
  Report Type: Report from Study
  Country: DE (occurrence: DE)
  Receive Date: 20150605
  Receipt Date: 20151006
  Transmission Date: 20160304
  Serious: Yes (Hospitalization, Other)
  Sender: FDA-Public Use
  Company Number: DE-ABBVIE-15K-062-1400051-00

PATIENT
  Age: 77 Year
  Sex: Female

DRUGS (12)
  1. PREDNISOLONE. [Concomitant]
     Active Substance: PREDNISOLONE
  2. PANTOPRAZOLE [Concomitant]
     Active Substance: PANTOPRAZOLE SODIUM
     Indication: PRODUCT USED FOR UNKNOWN INDICATION
  3. HUMIRA [Suspect]
     Active Substance: ADALIMUMAB
     Indication: CROHN^S DISEASE
     Route: 058
  4. MAGNESIUM [Concomitant]
     Active Substance: MAGNESIUM
     Indication: PRODUCT USED FOR UNKNOWN INDICATION
  5. KALIUM [Concomitant]
     Active Substance: POTASSIUM CHLORIDE
     Indication: PRODUCT USED FOR UNKNOWN INDICATION
  6. SANDOCAL-D [Concomitant]
     Indication: PRODUCT USED FOR UNKNOWN INDICATION
     Dosage: 1000/880 I.E
  7. PENTASA [Concomitant]
     Active Substance: MESALAMINE
     Indication: PRODUCT USED FOR UNKNOWN INDICATION
  8. PREDNISOLONE. [Concomitant]
     Active Substance: PREDNISOLONE
     Indication: PRODUCT USED FOR UNKNOWN INDICATION
  9. HUMIRA [Suspect]
     Active Substance: ADALIMUMAB
     Route: 058
     Dates: end: 201505
  10. LISINOPRIL AL [Concomitant]
     Indication: PRODUCT USED FOR UNKNOWN INDICATION
  11. ASPIRIN. [Concomitant]
     Active Substance: ASPIRIN
     Indication: PRODUCT USED FOR UNKNOWN INDICATION
  12. CALCIUM [Concomitant]
     Active Substance: CALCIUM
     Indication: PRODUCT USED FOR UNKNOWN INDICATION

REACTIONS (6)
  - Intestinal stenosis [Recovered/Resolved]
  - Crohn^s disease [Recovering/Resolving]
  - Suture rupture [Recovered/Resolved]
  - Colitis [Not Recovered/Not Resolved]
  - Weight decreased [Recovered/Resolved]
  - Inflammatory marker increased [Not Recovered/Not Resolved]

NARRATIVE: CASE EVENT DATE: 201503
